FAERS Safety Report 21529726 (Version 3)
Quarter: 2022Q4

REPORT INFORMATION
  Report Type: Spontaneous
  Country: PT (occurrence: CH)
  Receive Date: 20221031
  Receipt Date: 20221212
  Transmission Date: 20230112
  Serious: Yes (Hospitalization, Other)
  Sender: FDA-Public Use
  Company Number: None

PATIENT
  Age: 73 Year
  Sex: Female

DRUGS (8)
  1. ESLICARBAZEPINE ACETATE [Suspect]
     Active Substance: ESLICARBAZEPINE ACETATE
     Indication: Epilepsy
     Dosage: 200 MILLIGRAM, 1X / DAY, EVENING
     Route: 065
     Dates: start: 20211210, end: 20211215
  2. ESLICARBAZEPINE ACETATE [Suspect]
     Active Substance: ESLICARBAZEPINE ACETATE
     Dosage: 400 MG, HS
     Route: 065
     Dates: start: 202201, end: 202201
  3. ESLICARBAZEPINE ACETATE [Suspect]
     Active Substance: ESLICARBAZEPINE ACETATE
     Dosage: 600 MG, HS
  4. VIMPAT [Suspect]
     Active Substance: LACOSAMIDE
     Indication: Epilepsy
     Dosage: 100 MILLIGRAM, 2X / DAY
     Route: 048
     Dates: start: 20211216
  5. KEPPRA [Concomitant]
     Active Substance: LEVETIRACETAM
     Dosage: UNKNOWN
     Route: 065
     Dates: end: 20220126
  6. CLOBAZAM [Concomitant]
     Active Substance: CLOBAZAM
     Dosage: 5 MG, TID
     Route: 065
     Dates: end: 20211209
  7. CLOBAZAM [Concomitant]
     Active Substance: CLOBAZAM
     Dosage: 5 MG, BID (1/2 CP MORNING AND 1/2 CP EVENING, DAILY DOSE: 10 MG)
     Route: 065
     Dates: start: 20211210, end: 20211216
  8. CLOBAZAM [Concomitant]
     Active Substance: CLOBAZAM
     Dosage: 5 MG, QD (1/2 CP IN THE EVENING)
     Route: 065
     Dates: start: 20211217, end: 20211223

REACTIONS (1)
  - Rash maculo-papular [Recovered/Resolved]

NARRATIVE: CASE EVENT DATE: 20211214
